FAERS Safety Report 19401236 (Version 1)
Quarter: 2021Q2

REPORT INFORMATION
  Report Type: Spontaneous
  Country: US (occurrence: US)
  Receive Date: 20210611
  Receipt Date: 20210611
  Transmission Date: 20210717
  Serious: Yes (Other)
  Sender: FDA-Public Use
  Company Number: US-B.I. PHARMACEUTICALS,INC./RIDGEFIELD-2021-BI-107381

PATIENT
  Age: 65 Year
  Sex: Male

DRUGS (7)
  1. OFEV [Suspect]
     Active Substance: NINTEDANIB
     Indication: IDIOPATHIC PULMONARY FIBROSIS
     Dosage: 150MG TWICE DAILY
     Route: 065
     Dates: start: 202004
  2. ATORVASTATIN [Concomitant]
     Active Substance: ATORVASTATIN
     Indication: BLOOD CHOLESTEROL
     Dosage: 80MG DAILY
     Dates: start: 202105
  3. SYNTHROID [Concomitant]
     Active Substance: LEVOTHYROXINE SODIUM
     Indication: HYPOTHYROIDISM
     Dosage: 175MCG DAILY
     Dates: start: 202004
  4. CYMBALTA [Concomitant]
     Active Substance: DULOXETINE HYDROCHLORIDE
     Indication: DEPRESSION
     Dosage: 60MG DAILY
     Dates: start: 202004
  5. METOPROLOL. [Concomitant]
     Active Substance: METOPROLOL
     Indication: CARDIAC DISORDER
     Dosage: 25MG DAILY
     Dates: start: 202105
  6. INCRUSE ELLIPTA [Concomitant]
     Active Substance: UMECLIDINIUM BROMIDE
     Indication: IDIOPATHIC PULMONARY FIBROSIS
     Dosage: 62.5MCG INHALED DAILY
     Route: 055
     Dates: start: 202004
  7. BREO ELLIPTA [Concomitant]
     Active Substance: FLUTICASONE FUROATE\VILANTEROL TRIFENATATE
     Indication: IDIOPATHIC PULMONARY FIBROSIS
     Dosage: 200MCG?25MCG INHALED DAILY
     Route: 055
     Dates: start: 202004

REACTIONS (2)
  - Vascular graft [Recovered/Resolved]
  - Cardiac operation [Recovered/Resolved]

NARRATIVE: CASE EVENT DATE: 20210525
